FAERS Safety Report 9230748 (Version 1)
Quarter: 2013Q1

REPORT INFORMATION
  Report Type: Spontaneous
  Country: US (occurrence: None)
  Receive Date: 20121031
  Receipt Date: 20121031
  Transmission Date: 20140127
  Serious: No
  Sender: FDA-Public Use
  Company Number: PHEH2012US016594

PATIENT
  Age: 49 Year
  Sex: Female
  Weight: 104.3 kg

DRUGS (13)
  1. GILENYA (FTY) CAPSULE, 0.5MG [Suspect]
     Indication: MULTIPLE SCLEROSIS
     Route: 048
     Dates: start: 20120808
  2. CYMBALTA (DULOXETINE HYDROCHLORIDE) [Concomitant]
  3. GABAPENTIN (GABAPENTIN) [Concomitant]
  4. TOPAMAX (TOPIRAMATE) [Concomitant]
  5. ZOLPIDEM (ZOLPIDEM) [Concomitant]
  6. ALPRAZOLAM (ALPRAZOLAM) [Concomitant]
  7. OXYCODONE W/PARACETAMOL (OXYCODONE, PARACETAMOL) [Concomitant]
  8. ACETAMINOP. W/BUTALBITAUCAFF./CODEINE PHOSP. (BUTALBITAL, CAFFEINE, CODEINE PHOSPHATE, PARACETAMOL) [Concomitant]
  9. WARFARIN (WARFARIN) [Concomitant]
  10. ZYPREXA (OLANZAPINE) [Concomitant]
  11. SUMATRIPTAN (SUMATRIPTAN) [Concomitant]
  12. AMITRIPTYLINE (AMITRIPTYLINE) [Concomitant]
  13. CLONAZEPAM (CLONAZEPAM) [Concomitant]

REACTIONS (5)
  - Feeling abnormal [None]
  - Fatigue [None]
  - Somnolence [None]
  - Myalgia [None]
  - Asthenia [None]
